FAERS Safety Report 19707300 (Version 1)
Quarter: 2021Q3

REPORT INFORMATION
  Report Type: Spontaneous
  Country: NL (occurrence: NL)
  Receive Date: 20210817
  Receipt Date: 20210817
  Transmission Date: 20211014
  Serious: Yes (Other)
  Sender: FDA-Public Use
  Company Number: NL-ACCORD-235485

PATIENT
  Age: 0 Week
  Sex: Male
  Weight: 3 kg

DRUGS (2)
  1. CLOMIPRAMINE [Concomitant]
     Active Substance: CLOMIPRAMINE
     Dosage: COATED TABLET, 25 MG (MILLIGRAMS)
  2. QUETIAPINE/QUETIAPINE FUMARATE [Suspect]
     Active Substance: QUETIAPINE FUMARATE
     Indication: PSYCHOTIC DISORDER
     Dosage: STRENGTH 25 MG, 1 X PER DAY 1 PIECE

REACTIONS (3)
  - Leukopenia neonatal [Recovered/Resolved]
  - Neutropenia neonatal [Recovered/Resolved]
  - Maternal exposure during pregnancy [Unknown]

NARRATIVE: CASE EVENT DATE: 20210717
